FAERS Safety Report 8345294-5 (Version None)
Quarter: 2012Q2

REPORT INFORMATION
  Report Type: 
  Country: None (occurrence: None)
  Receive Date: 20120504
  Receipt Date: 20120423
  Transmission Date: 20120825
  Serious: Yes (Hospitalization, Other)
  Sender: FDA-Public Use
  Company Number: VAL_00749_2012

PATIENT
  Age: 70 Year
  Sex: Female

DRUGS (1)
  1. CARBAMAZEPINE [Suspect]
     Indication: PARTIAL SEIZURES
     Dosage: (300 MG/DAY), (200 MG, DOSE AND FREQUENCY UNKNOWN)

REACTIONS (6)
  - PSYCHOMOTOR RETARDATION [None]
  - METABOLIC DISORDER [None]
  - HYPERSOMNIA [None]
  - ELECTROENCEPHALOGRAM ABNORMAL [None]
  - MEMORY IMPAIRMENT [None]
  - TOXIC ENCEPHALOPATHY [None]
